FAERS Safety Report 23351194 (Version 1)
Quarter: 2023Q4

REPORT INFORMATION
  Report Type: Report from Study
  Country: US (occurrence: US)
  Receive Date: 20231229
  Receipt Date: 20231229
  Transmission Date: 20240110
  Serious: Yes (Other)
  Sender: FDA-Public Use
  Company Number: US-ABBVIE-5563189

PATIENT
  Sex: Female

DRUGS (1)
  1. VENCLEXTA [Suspect]
     Active Substance: VENETOCLAX
     Indication: Chronic lymphocytic leukaemia
     Dosage: TAKE 4 TABLETS BY MOUTH ONCE DAILY?FORM STRENGTH: 100 MILLIGRAM
     Route: 048

REACTIONS (6)
  - Neoplasm [Unknown]
  - Dry mouth [Unknown]
  - Hot flush [Unknown]
  - Hyperhidrosis [Unknown]
  - Gastric neoplasm [Unknown]
  - Vitreous floaters [Unknown]
